FAERS Safety Report 15693593 (Version 6)
Quarter: 2019Q2

REPORT INFORMATION
  Report Type: Spontaneous
  Country: DE (occurrence: DE)
  Receive Date: 20181206
  Receipt Date: 20190611
  Transmission Date: 20190711
  Serious: Yes (Hospitalization, Disabling, Other)
  Sender: FDA-Public Use
  Company Number: DE-AUROBINDO-AUR-APL-2018-058784

PATIENT

DRUGS (18)
  1. VALSARTAN FILM-COATED TABLET [Suspect]
     Active Substance: VALSARTAN
     Indication: HYPERTENSION
     Dosage: 160 MILLIGRAM, ONCE A DAY
     Route: 065
  2. BEPANTHEN [Concomitant]
     Indication: PRODUCT USED FOR UNKNOWN INDICATION
     Dosage: UNK
     Route: 065
  3. NEBIVOLOL. [Concomitant]
     Active Substance: NEBIVOLOL
     Dosage: 5 MILLIGRAM, ONCE A DAY (1-0-0)
     Route: 065
     Dates: start: 2016, end: 2016
  4. MCP [Concomitant]
     Active Substance: METOCLOPRAMIDE HYDROCHLORIDE
     Indication: PRODUCT USED FOR UNKNOWN INDICATION
     Dosage: 3 UNK, ONCE A DAY (UNK UNK, TID (1-1-1))
     Route: 065
  5. IBUPROFEN. [Concomitant]
     Active Substance: IBUPROFEN
     Dosage: 1200 MILLIGRAM, ONCE A DAY, TID (1-1-1)
     Route: 065
     Dates: start: 20160415
  6. MUCOFALK [Concomitant]
     Indication: CONSTIPATION PROPHYLAXIS
     Dosage: UNK
     Route: 065
     Dates: start: 2016
  7. NEBIVOLOL. [Concomitant]
     Active Substance: NEBIVOLOL
     Indication: PRODUCT USED FOR UNKNOWN INDICATION
     Dosage: 2.5 MILLIGRAM, ONCE A DAY (1-0-0)
     Route: 065
  8. NOVALGIN [Concomitant]
     Indication: PRODUCT USED FOR UNKNOWN INDICATION
     Dosage: 40 DROP, (ON DEMAND)
     Route: 065
  9. VALSARTAN HEXAL [Suspect]
     Active Substance: VALSARTAN
     Indication: HYPERTENSION
     Dosage: UNK
     Route: 065
     Dates: start: 2012
  10. IBUPROFEN. [Concomitant]
     Active Substance: IBUPROFEN
     Indication: PRODUCT USED FOR UNKNOWN INDICATION
     Dosage: 600 MILLIGRAM, PRN
     Route: 065
  11. VALSACOR [Suspect]
     Active Substance: VALSARTAN
     Indication: HYPERTENSION
     Dosage: 160 MG, UNK
     Route: 065
  12. VALSARTAN 1A PHARMA [Suspect]
     Active Substance: VALSARTAN
     Indication: HYPERTENSION
     Dosage: 160 MILLIGRAM
     Route: 065
  13. RANITIDIN [Concomitant]
     Active Substance: RANITIDINE HYDROCHLORIDE
     Indication: PRODUCT USED FOR UNKNOWN INDICATION
     Dosage: 300 MILLIGRAM, ONCE A DAY (1-0-0)
     Route: 065
  14. NOVAMINSULFON [Concomitant]
     Active Substance: METAMIZOLE
     Indication: PRODUCT USED FOR UNKNOWN INDICATION
     Dosage: 30 GTT DROPS, ONCE A DAY (1-1-1-1)
     Route: 065
  15. REMESTAN [Concomitant]
     Active Substance: TEMAZEPAM
     Indication: PRODUCT USED FOR UNKNOWN INDICATION
     Dosage: UNK UNK, QD (0-0-0-1)
     Route: 065
  16. VERGENTAN [Concomitant]
     Active Substance: ALIZAPRIDE HYDROCHLORIDE
     Indication: PRODUCT USED FOR UNKNOWN INDICATION
     Dosage: 3 UNK, ONCE A DAY (UNK UNK, TID (1-1-1))
     Route: 065
  17. PLANUM [Concomitant]
     Indication: PRODUCT USED FOR UNKNOWN INDICATION
     Dosage: UNK
     Route: 065
     Dates: start: 20160421
  18. METAMIZOLE [Suspect]
     Active Substance: METAMIZOLE
     Indication: PRODUCT USED FOR UNKNOWN INDICATION
     Dosage: 120 DROP, ONCE A DAY
     Route: 065

REACTIONS (32)
  - Mental disorder [Not Recovered/Not Resolved]
  - Lymphocyte count decreased [Unknown]
  - Pyrexia [Unknown]
  - Abdominal pain upper [Unknown]
  - Haemorrhoids [Unknown]
  - Fear of death [Not Recovered/Not Resolved]
  - Dyschezia [Unknown]
  - Anal infection [Unknown]
  - Anal squamous cell carcinoma [Unknown]
  - Skin maceration [Unknown]
  - Anal cancer stage 0 [Unknown]
  - Anal cancer [Unknown]
  - Dermatitis [Unknown]
  - Gastrointestinal motility disorder [Unknown]
  - Haematochezia [Unknown]
  - C-reactive protein increased [Unknown]
  - Proctalgia [Unknown]
  - Anal ulcer [Unknown]
  - Anal inflammation [Unknown]
  - Anorectal discomfort [Unknown]
  - Pain [Unknown]
  - Monocyte count increased [Unknown]
  - Impaired quality of life [Unknown]
  - Squamous cell carcinoma [Unknown]
  - Neutrophil count increased [Unknown]
  - Oropharyngeal pain [Unknown]
  - Radiation skin injury [Unknown]
  - Anal pruritus [Unknown]
  - Anxiety disorder [Unknown]
  - Stevens-Johnson syndrome [Unknown]
  - Inflammation [Unknown]
  - Glaucoma [Unknown]

NARRATIVE: CASE EVENT DATE: 2014
